FAERS Safety Report 18218195 (Version 2)
Quarter: 2021Q1

REPORT INFORMATION
  Report Type: Spontaneous
  Country: US (occurrence: US)
  Receive Date: 20200901
  Receipt Date: 20210104
  Transmission Date: 20210419
  Serious: No
  Sender: FDA-Public Use
  Company Number: US-ELI_LILLY_AND_COMPANY-US202009000244

PATIENT
  Sex: Male

DRUGS (2)
  1. RETEVMO [Suspect]
     Active Substance: SELPERCATINIB
     Indication: PRODUCT USED FOR UNKNOWN INDICATION
     Dosage: 120 MG, BID
     Route: 048
     Dates: start: 20200617, end: 20200715
  2. RETEVMO [Suspect]
     Active Substance: SELPERCATINIB
     Dosage: 80 UNK
     Route: 048
     Dates: start: 20200818, end: 20201024

REACTIONS (5)
  - Rash [Unknown]
  - Myopathy [Unknown]
  - Neuropathy peripheral [Unknown]
  - Fall [Recovered/Resolved]
  - Oedema peripheral [Unknown]
